FAERS Safety Report 10329956 (Version 1)
Quarter: 2014Q3

REPORT INFORMATION
  Report Type: Spontaneous
  Country: FR (occurrence: FR)
  Receive Date: 20140721
  Receipt Date: 20140721
  Transmission Date: 20150326
  Serious: Yes (Death, Congenital Anomaly)
  Sender: FDA-Public Use
  Company Number: FR-ASTRAZENECA-2014SE52402

PATIENT

DRUGS (5)
  1. DAFLON [Concomitant]
     Active Substance: DIOSMIN\HESPERIDIN
     Dosage: 500 MG ON DEMAND
     Route: 064
     Dates: start: 2014
  2. ALDOMET [Concomitant]
     Active Substance: METHYLDOPA
     Route: 064
     Dates: start: 20140606
  3. ATACAND [Suspect]
     Active Substance: CANDESARTAN CILEXETIL
     Indication: ESSENTIAL HYPERTENSION
     Route: 064
     Dates: start: 20140523, end: 20140605
  4. TARDYFERON [Concomitant]
     Active Substance: FERROUS SULFATE\FOLIC ACID
     Route: 064
     Dates: start: 2014
  5. ATACAND [Suspect]
     Active Substance: CANDESARTAN CILEXETIL
     Indication: ESSENTIAL HYPERTENSION
     Route: 064
     Dates: start: 20131220, end: 20140523

REACTIONS (2)
  - Renal aplasia [Fatal]
  - Oligohydramnios [Fatal]

NARRATIVE: CASE EVENT DATE: 20140617
